FAERS Safety Report 6171264-1 (Version None)
Quarter: 2009Q2

REPORT INFORMATION
  Report Type: 
  Country: None (occurrence: None)
  Receive Date: 20090429
  Receipt Date: 20090427
  Transmission Date: 20091009
  Serious: Yes (Life-Threatening)
  Sender: FDA-Public Use
  Company Number: NL-ASTRAZENECA-2009AC01101

PATIENT
  Age: 7501 Day
  Sex: Female

DRUGS (4)
  1. SEROQUEL XR [Suspect]
     Indication: BIPOLAR II DISORDER
     Route: 048
     Dates: start: 20081218, end: 20090327
  2. REVATIO [Concomitant]
     Indication: PULMONARY HYPERTENSION
     Route: 048
     Dates: start: 20060101
  3. ACENOCOUMAROL [Concomitant]
     Indication: ANTICOAGULANT THERAPY
     Dates: start: 20060101
  4. TRACLEER [Concomitant]
     Indication: PULMONARY HYPERTENSION
     Route: 048
     Dates: start: 20060101

REACTIONS (1)
  - SUPRAVENTRICULAR TACHYCARDIA [None]
